FAERS Safety Report 9053792 (Version 2)
Quarter: 2013Q2

REPORT INFORMATION
  Report Type: Spontaneous
  Country: US (occurrence: None)
  Receive Date: 20130117
  Receipt Date: 20130515
  Transmission Date: 20140414
  Serious: Yes (Death, Hospitalization)
  Sender: FDA-Public Use
  Company Number: 2013US001006

PATIENT
  Age: 25 Year
  Sex: Male
  Weight: 68.2 kg

DRUGS (2)
  1. PONATINIB [Suspect]
     Indication: ACUTE LYMPHOCYTIC LEUKAEMIA
     Route: 048
     Dates: start: 20120820, end: 20121227
  2. LORAZEPAM [Concomitant]

REACTIONS (3)
  - Ataxia [None]
  - Hydrocephalus [None]
  - Leukaemia recurrent [None]
